FAERS Safety Report 17507925 (Version 1)
Quarter: 2020Q1

REPORT INFORMATION
  Report Type: Spontaneous
  Country: US (occurrence: US)
  Receive Date: 20200225
  Receipt Date: 20200225
  Transmission Date: 20200409
  Serious: Yes (Death)
  Sender: FDA-Public Use
  Company Number: None

PATIENT
  Age: 65 Year
  Sex: Female

DRUGS (20)
  1. ALBUTEROL HFA [Concomitant]
     Active Substance: ALBUTEROL SULFATE
  2. COREG [Concomitant]
     Active Substance: CARVEDILOL
  3. BENZONATATE. [Concomitant]
     Active Substance: BENZONATATE
  4. HYDRALAZINE [Concomitant]
     Active Substance: HYDRALAZINE HYDROCHLORIDE
  5. LIDOCAINE TOP CREAM [Concomitant]
  6. KRILL OIL [Concomitant]
     Active Substance: DIETARY SUPPLEMENT\KRILL OIL
  7. AMLODIPINE [Concomitant]
     Active Substance: AMLODIPINE BESYLATE
  8. OPSUMIT [Suspect]
     Active Substance: MACITENTAN
     Indication: PULMONARY HYPERTENSION
     Route: 048
     Dates: start: 201902, end: 202002
  9. RENVELA [Concomitant]
     Active Substance: SEVELAMER CARBONATE
  10. DYDRALAZINE [Concomitant]
  11. CALCIUM ACETATE. [Concomitant]
     Active Substance: CALCIUM ACETATE
  12. ATORVASTATIN [Concomitant]
     Active Substance: ATORVASTATIN
  13. CAPASICIN TOP CEAM [Concomitant]
  14. NEPHRO VITE RX [Concomitant]
     Active Substance: ASCORBIC ACID\BIOTIN\CALCIUM PANTOTHENATE\CYANOCOBALAMIN\FOLIC ACID\NIACINAMIDE\PYRIDOXINE HYDROCHLORIDE\RIBOFLAVIN\THIAMINE MONONITRATE
  15. SYMBICORT HFA [Concomitant]
  16. FLONASE [Concomitant]
     Active Substance: FLUTICASONE PROPIONATE
  17. TADALAFIL. [Concomitant]
     Active Substance: TADALAFIL
  18. TYLENOL [Concomitant]
     Active Substance: ACETAMINOPHEN
  19. GABAPENTIN. [Concomitant]
     Active Substance: GABAPENTIN
  20. TEMOVATE SCALP SOLN [Concomitant]

REACTIONS (1)
  - Death [None]

NARRATIVE: CASE EVENT DATE: 20200214
